FAERS Safety Report 7513021-7 (Version None)
Quarter: 2011Q2

REPORT INFORMATION
  Report Type: 
  Country: None (occurrence: None)
  Receive Date: 20110525
  Receipt Date: 20110525
  Transmission Date: 20111010
  Serious: Yes (Hospitalization, Other)
  Sender: FDA-Public Use
  Company Number: None

PATIENT
  Age: 7 Year
  Sex: Female
  Weight: 24.4942 kg

DRUGS (1)
  1. ZOFRAN [Suspect]
     Indication: NAUSEA
     Dates: start: 20110514, end: 20110514

REACTIONS (7)
  - ALTERED STATE OF CONSCIOUSNESS [None]
  - CONVULSION [None]
  - BLINDNESS [None]
  - CATATONIA [None]
  - SCREAMING [None]
  - LOSS OF CONSCIOUSNESS [None]
  - EYE MOVEMENT DISORDER [None]
